FAERS Safety Report 22067058 (Version 1)
Quarter: 2023Q1

REPORT INFORMATION
  Report Type: Spontaneous
  Country: GB (occurrence: GB)
  Receive Date: 20230306
  Receipt Date: 20230306
  Transmission Date: 20230418
  Serious: Yes (Other)
  Sender: FDA-Public Use
  Company Number: GB-BRISTOL-MYERS SQUIBB COMPANY-2023-032784

PATIENT
  Age: 54 Year
  Sex: Female
  Weight: 56.1 kg

DRUGS (7)
  1. NIVOLUMAB [Suspect]
     Active Substance: NIVOLUMAB
     Indication: Renal cancer
     Dosage: 3 MG/KG
     Route: 042
  2. SUNITINIB [Concomitant]
     Active Substance: SUNITINIB
     Indication: Product used for unknown indication
     Dates: start: 201501, end: 201503
  3. PAZOPANIB [Concomitant]
     Active Substance: PAZOPANIB
     Indication: Product used for unknown indication
     Dates: start: 201510, end: 201606
  4. PAZOPANIB [Concomitant]
     Active Substance: PAZOPANIB
     Dates: start: 201503, end: 201507
  5. ALDESLEUKIN [Concomitant]
     Active Substance: ALDESLEUKIN
     Indication: Product used for unknown indication
     Dates: start: 201508, end: 201508
  6. AXITINIB [Concomitant]
     Active Substance: AXITINIB
     Dates: start: 201606, end: 201706
  7. CABOZANTINIB [Concomitant]
     Active Substance: CABOZANTINIB
     Indication: Product used for unknown indication
     Dates: start: 201803, end: 202303

REACTIONS (2)
  - Hepatotoxicity [Unknown]
  - Immune-mediated hepatitis [Unknown]

NARRATIVE: CASE EVENT DATE: 20170601
